FAERS Safety Report 25381464 (Version 1)
Quarter: 2025Q2

REPORT INFORMATION
  Report Type: Report from Study
  Country: US (occurrence: US)
  Receive Date: 20250530
  Receipt Date: 20250530
  Transmission Date: 20250717
  Serious: Yes (Hospitalization, Other)
  Sender: REGENERON
  Company Number: US-REGENERON PHARMACEUTICALS, INC.-2025-032539

PATIENT
  Sex: Male

DRUGS (4)
  1. CEMIPLIMAB [Suspect]
     Active Substance: CEMIPLIMAB
     Indication: Squamous cell carcinoma of skin
     Dosage: 350 MG, Q3W
     Route: 042
     Dates: start: 20250228, end: 20250321
  2. CEMIPLIMAB [Suspect]
     Active Substance: CEMIPLIMAB
     Dosage: 350 MG, Q3W
     Route: 042
     Dates: start: 20250502, end: 20250502
  3. VENCLEXTA [Concomitant]
     Active Substance: VENETOCLAX
     Indication: Chronic lymphocytic leukaemia
     Dates: end: 20250516
  4. HYDROCHLOROTHIAZIDE [Concomitant]
     Active Substance: HYDROCHLOROTHIAZIDE
     Indication: Product used for unknown indication

REACTIONS (20)
  - Hepatic steatosis [Recovering/Resolving]
  - Meningitis [Unknown]
  - Torticollis [Unknown]
  - Dysarthria [Unknown]
  - Facial paralysis [Not Recovered/Not Resolved]
  - Laryngeal obstruction [Unknown]
  - Immunodeficiency [Unknown]
  - Myositis [Unknown]
  - Micturition urgency [Not Recovered/Not Resolved]
  - Diarrhoea [Recovered/Resolved]
  - Asthenia [Unknown]
  - Posture abnormal [Unknown]
  - Dysphagia [Unknown]
  - Neutrophil count abnormal [Unknown]
  - Alanine aminotransferase increased [Recovering/Resolving]
  - Aspartate aminotransferase increased [Recovering/Resolving]
  - Blood creatine phosphokinase increased [Unknown]
  - Skin lesion [Not Recovered/Not Resolved]
  - Cardiac disorder [Unknown]
  - Dropped head syndrome [Unknown]

NARRATIVE: CASE EVENT DATE: 20250101
